FAERS Safety Report 19881093 (Version 1)
Quarter: 2021Q3

REPORT INFORMATION
  Report Type: Spontaneous
  Country: CA (occurrence: CA)
  Receive Date: 20210924
  Receipt Date: 20210924
  Transmission Date: 20211014
  Serious: Yes (Death)
  Sender: FDA-Public Use
  Company Number: CA-TEVA-2021-CA-1956079

PATIENT
  Age: 28 Year
  Sex: Male

DRUGS (6)
  1. GAMMA HYDROXYBUTYRATE (GHB) [Concomitant]
  2. LORAZEPAM. [Concomitant]
     Active Substance: LORAZEPAM
  3. FENTANYL. [Suspect]
     Active Substance: FENTANYL
     Route: 065
  4. CANNABIS [Concomitant]
     Active Substance: CANNABIS SATIVA SUBSP. INDICA TOP
  5. CLONAZEPAM. [Concomitant]
     Active Substance: CLONAZEPAM
  6. COCAINE [Suspect]
     Active Substance: COCAINE
     Route: 065

REACTIONS (3)
  - Pulmonary congestion [Fatal]
  - Pulmonary oedema [Fatal]
  - Arrhythmia [Fatal]
